FAERS Safety Report 14481406 (Version 1)
Quarter: 2018Q1

REPORT INFORMATION
  Report Type: Spontaneous
  Country: FR (occurrence: FR)
  Receive Date: 20180202
  Receipt Date: 20180202
  Transmission Date: 20180509
  Serious: Yes (Other)
  Sender: FDA-Public Use
  Company Number: FR-PFIZER INC-2018040431

PATIENT
  Age: 85 Year
  Sex: Male
  Weight: 83 kg

DRUGS (14)
  1. DAPTOMYCIN. [Suspect]
     Active Substance: DAPTOMYCIN
     Dosage: 350 MG, 1X/DAY
     Route: 042
     Dates: start: 20171120, end: 20171122
  2. OXACILLIN [Suspect]
     Active Substance: OXACILLIN SODIUM
     Dosage: 12 G, 1X/DAY
     Route: 042
     Dates: start: 20171122, end: 20171130
  3. KALEORID LP [Concomitant]
     Active Substance: POTASSIUM CHLORIDE
     Dosage: 1200 MG, 1X/DAY
     Route: 048
  4. GLUCOPHAGE [Concomitant]
     Active Substance: METFORMIN HYDROCHLORIDE
     Dosage: 500 MG, 1X/DAY
     Route: 048
  5. GALVUS [Concomitant]
     Active Substance: VILDAGLIPTIN
     Dosage: 100 MG, 1X/DAY
     Route: 048
  6. PREVISCAN (FLUINDIONE) [Concomitant]
     Active Substance: FLUINDIONE
     Dosage: 10 MG, 1X/DAY
     Route: 048
  7. KALEORID LP [Concomitant]
     Active Substance: POTASSIUM CHLORIDE
     Dosage: 1200 MG, 1X/DAY
     Route: 048
  8. HEMIGOXINE NATIVELLE [Concomitant]
     Active Substance: DIGOXIN
     Dosage: 0.13 MG, 1X/DAY
     Route: 048
  9. TARDYFERON [Concomitant]
     Active Substance: FERROUS SULFATE
     Dosage: 80 MG, 1X/DAY
     Route: 048
  10. TRIATEC [Concomitant]
     Active Substance: RAMIPRIL
     Dosage: 2.5 MG, 1X/DAY
     Route: 048
  11. ULTIBRO BREEZHALER [Concomitant]
     Active Substance: GLYCOPYRRONIUM\INDACATEROL
     Dosage: 1 DF, 1X/DAY
     Route: 055
  12. NOVONORM [Concomitant]
     Active Substance: REPAGLINIDE
     Dosage: 0.5 MG, 1X/DAY
     Route: 048
  13. CLINDAMYCIN PHOSPHATE. [Suspect]
     Active Substance: CLINDAMYCIN PHOSPHATE
     Dosage: 2.4 G, 1X/DAY
     Route: 042
     Dates: start: 20171122, end: 20171130
  14. LASILIX FAIBLE [Concomitant]
     Active Substance: FUROSEMIDE
     Dosage: 20 MG, 1X/DAY
     Route: 048

REACTIONS (1)
  - Hepatitis cholestatic [Recovering/Resolving]

NARRATIVE: CASE EVENT DATE: 20171128
